FAERS Safety Report 6914842-1 (Version None)
Quarter: 2010Q3

REPORT INFORMATION
  Report Type: 
  Country: None (occurrence: None)
  Receive Date: 20100804
  Receipt Date: 20100804
  Transmission Date: 20110219
  Serious: Yes (Hospitalization)
  Sender: FDA-Public Use
  Company Number: None

PATIENT
  Age: 75 Year
  Sex: Male

DRUGS (1)
  1. OLANZAPINE [Suspect]
     Dosage: 5 MG EVERY DAY PO
     Route: 048
     Dates: start: 20091217, end: 20100124

REACTIONS (2)
  - DYSKINESIA [None]
  - SEROTONIN SYNDROME [None]
